FAERS Safety Report 5219382-6 (Version None)
Quarter: 2007Q1

REPORT INFORMATION
  Report Type: 
  Country: None (occurrence: None)
  Receive Date: 20061121
  Receipt Date: 20060905
  Transmission Date: 20070707
  Serious: No
  Sender: FDA-Public Use
  Company Number: TPA2006A01514

PATIENT
  Age: 85 Year
  Sex: Female
  Weight: 72.5755 kg

DRUGS (7)
  1. ROZEREM [Suspect]
     Indication: INSOMNIA
     Dosage: 8 MG, QHS, PER ORAL
     Route: 048
     Dates: start: 20060822, end: 20060825
  2. TEMAZEPAM [Concomitant]
  3. WARFARIN SODIUM [Concomitant]
  4. ATENOLOL (ATENOLOL) (25 MILLIGRAM) [Concomitant]
  5. FLECAINIDE (FLECAINIDE) (50 MILLIGRAM) [Concomitant]
  6. NORVASC (AMLODIPINE BESILATE) (10 MILLIGRAM) [Concomitant]
  7. PRILOSEC (OMEPRAZOLE) (20 MILLIGRAM) [Concomitant]

REACTIONS (5)
  - BACK PAIN [None]
  - INITIAL INSOMNIA [None]
  - MOBILITY DECREASED [None]
  - MUSCULAR WEAKNESS [None]
  - PAIN IN EXTREMITY [None]
